FAERS Safety Report 4375007-3 (Version None)
Quarter: 2004Q2

REPORT INFORMATION
  Report Type: 
  Country: None (occurrence: None)
  Receive Date: 20040604
  Receipt Date: 20040113
  Transmission Date: 20050107
  Serious: No
  Sender: FDA-Public Use
  Company Number: 7253

PATIENT
  Age: 59 Year
  Sex: Female

DRUGS (4)
  1. METHOTREXATE [Suspect]
     Indication: RHEUMATOID ARTHRITIS
     Dosage: 25 MG WEEKLY/10 MG WEEKLY/15 WEEKLY; IV
     Route: 042
     Dates: end: 19910301
  2. METHOTREXATE [Suspect]
     Indication: RHEUMATOID ARTHRITIS
     Dosage: 25 MG WEEKLY/10 MG WEEKLY/15 WEEKLY; IV
     Route: 042
     Dates: end: 19930501
  3. METHOTREXATE [Suspect]
     Indication: RHEUMATOID ARTHRITIS
     Dosage: 25 MG WEEKLY/10 MG WEEKLY/15 WEEKLY; IV
     Route: 042
     Dates: end: 20040101
  4. CALCIUM FOLINATE [Concomitant]

REACTIONS (6)
  - CHRONIC LYMPHOCYTIC LEUKAEMIA [None]
  - DRUG INTOLERANCE [None]
  - EPISTAXIS [None]
  - FEELING ABNORMAL [None]
  - GASTROINTESTINAL MUCOSAL DISORDER [None]
  - NASAL MUCOSAL DISORDER [None]
